FAERS Safety Report 23732813 (Version 1)
Quarter: 2024Q2

REPORT INFORMATION
  Report Type: Spontaneous
  Country: US (occurrence: US)
  Receive Date: 20240411
  Receipt Date: 20240411
  Transmission Date: 20240716
  Serious: No
  Sender: FDA-Public Use
  Company Number: US-009507513-2404USA005242

PATIENT
  Age: 65 Year
  Sex: Male

DRUGS (3)
  1. CUBICIN [Suspect]
     Active Substance: DAPTOMYCIN
     Indication: Endocarditis
     Dosage: UNK
  2. CUBICIN [Suspect]
     Active Substance: DAPTOMYCIN
     Indication: Prostatic abscess
  3. CEFTAROLINE [Concomitant]
     Active Substance: CEFTAROLINE
     Dosage: UNK

REACTIONS (1)
  - Product use in unapproved indication [Unknown]
